FAERS Safety Report 24545255 (Version 1)
Quarter: 2024Q4

REPORT INFORMATION
  Report Type: Spontaneous
  Country: DK (occurrence: DK)
  Receive Date: 20241024
  Receipt Date: 20241024
  Transmission Date: 20250115
  Serious: Yes (Hospitalization)
  Sender: BAUSCH AND LOMB
  Company Number: None

PATIENT
  Age: 3 Decade
  Sex: Female
  Weight: 50 kg

DRUGS (4)
  1. LOCOID [Suspect]
     Active Substance: HYDROCORTISONE BUTYRATE
     Indication: Dermatitis atopic
     Route: 003
     Dates: start: 2008, end: 202308
  2. HYDROCORTISONE [Suspect]
     Active Substance: HYDROCORTISONE
     Indication: Dermatitis atopic
     Route: 003
     Dates: start: 2008, end: 202308
  3. ELOCON [Suspect]
     Active Substance: MOMETASONE FUROATE
     Indication: Dermatitis atopic
     Dosage: 1 DF AS NECESSARY
     Route: 003
     Dates: start: 2008, end: 202308
  4. CLOBETASOL [Suspect]
     Active Substance: CLOBETASOL
     Indication: Dermatitis atopic
     Route: 003
     Dates: start: 2022, end: 202308

REACTIONS (7)
  - Erythema [Recovered/Resolved]
  - Neuralgia [Recovered/Resolved]
  - Temperature regulation disorder [Recovered/Resolved]
  - Skin discharge [Recovered/Resolved]
  - Pruritus [Recovered/Resolved]
  - Alopecia [Recovered/Resolved]
  - Skin exfoliation [Unknown]

NARRATIVE: CASE EVENT DATE: 20230101
